FAERS Safety Report 10308165 (Version 1)
Quarter: 2014Q3

REPORT INFORMATION
  Report Type: Spontaneous
  Country: JP (occurrence: None)
  Receive Date: 20140711
  Receipt Date: 20140711
  Transmission Date: 20150326
  Serious: Yes (Other)
  Sender: FDA-Public Use
  Company Number: ABR_01734_2014

PATIENT
  Age: 40 Year
  Sex: Female

DRUGS (1)
  1. GLIADEL [Suspect]
     Active Substance: CARMUSTINE
     Indication: MALIGNANT GLIOMA
     Dosage: 46.2 MG INTRACEREBRAL
     Dates: start: 20140611

REACTIONS (2)
  - Headache [None]
  - Brain oedema [None]

NARRATIVE: CASE EVENT DATE: 20140613
